FAERS Safety Report 9753465 (Version 2)
Quarter: 2013Q4

REPORT INFORMATION
  Report Type: Spontaneous
  Country: US (occurrence: None)
  Receive Date: 20131211
  Receipt Date: 20131211
  Transmission Date: 20140711
  Serious: Yes (Hospitalization, Other)
  Sender: FDA-Public Use
  Company Number: AUR-APL-2013-10271

PATIENT
  Age: 71 Year
  Sex: Female
  Weight: 63.49 kg

DRUGS (5)
  1. SIMVASTATIN [Suspect]
     Indication: BLOOD CHOLESTEROL INCREASED
     Dosage: OPHTHALMIC
  2. CELEBREX (CELECOXIB) [Suspect]
     Indication: OSTEOARTHRITIS
     Route: 048
  3. CELEBREX (CELECOXIB) [Suspect]
     Indication: FIBROMYALGIA
     Route: 048
  4. CYMBALTA (DULOXETINE HYDROCHLORIDE) [Concomitant]
  5. METFORMIN [Concomitant]

REACTIONS (4)
  - Arthritis bacterial [None]
  - Escherichia infection [None]
  - Blood cholesterol increased [None]
  - Drug ineffective [None]
